FAERS Safety Report 9829318 (Version 1)
Quarter: 2014Q1

REPORT INFORMATION
  Report Type: Spontaneous
  Country: ES (occurrence: ES)
  Receive Date: 20140120
  Receipt Date: 20140120
  Transmission Date: 20141002
  Serious: Yes (Disabling)
  Sender: FDA-Public Use
  Company Number: ES-ROCHE-1334696

PATIENT
  Age: 54 Year
  Sex: Female

DRUGS (1)
  1. BONVIVA [Suspect]
     Indication: OSTEOPOROSIS
     Route: 048
     Dates: start: 2009, end: 201109

REACTIONS (2)
  - Movement disorder [Not Recovered/Not Resolved]
  - Torticollis [Not Recovered/Not Resolved]
